FAERS Safety Report 17491063 (Version 3)
Quarter: 2020Q2

REPORT INFORMATION
  Report Type: Report from Study
  Country: US (occurrence: US)
  Receive Date: 20200303
  Receipt Date: 20200429
  Transmission Date: 20200713
  Serious: No
  Sender: FDA-Public Use
  Company Number: NVSC2020US061039

PATIENT
  Age: 44 Year
  Sex: Female

DRUGS (1)
  1. COSENTYX [Suspect]
     Active Substance: SECUKINUMAB
     Indication: ANKYLOSING SPONDYLITIS
     Dosage: 1 DF, Q4W
     Route: 065

REACTIONS (5)
  - Drug ineffective [Unknown]
  - Psoriasis [Unknown]
  - Oropharyngeal pain [Unknown]
  - Malaise [Unknown]
  - Headache [Unknown]
